FAERS Safety Report 20901561 (Version 2)
Quarter: 2022Q2

REPORT INFORMATION
  Report Type: Report from Study
  Country: US (occurrence: US)
  Receive Date: 20220601
  Receipt Date: 20220607
  Transmission Date: 20220721
  Serious: Yes (Other)
  Sender: FDA-Public Use
  Company Number: US-HORIZON THERAPEUTICS-HZN-2021-000085

PATIENT

DRUGS (9)
  1. TEPEZZA [Suspect]
     Active Substance: TEPROTUMUMAB-TRBW
     Indication: Endocrine ophthalmopathy
     Dosage: 1ST INFUSION
     Route: 042
     Dates: start: 20200916
  2. TEPEZZA [Suspect]
     Active Substance: TEPROTUMUMAB-TRBW
     Dosage: 4TH INFUSION
     Route: 042
     Dates: start: 20201118
  3. TEPEZZA [Suspect]
     Active Substance: TEPROTUMUMAB-TRBW
     Dosage: 5TH INFUSION
     Route: 042
     Dates: start: 20201209
  4. TEPEZZA [Suspect]
     Active Substance: TEPROTUMUMAB-TRBW
     Dosage: 6TH INFUSION
     Route: 042
  5. TEPEZZA [Suspect]
     Active Substance: TEPROTUMUMAB-TRBW
     Dosage: 7TH INFUSION
     Route: 042
     Dates: start: 202105
  6. TEPEZZA [Suspect]
     Active Substance: TEPROTUMUMAB-TRBW
     Dosage: 8TH INFUSION
     Route: 042
     Dates: start: 202106, end: 202106
  7. PROPRANOLOL [Concomitant]
     Active Substance: PROPRANOLOL HYDROCHLORIDE
     Dosage: 10 MG, QD
  8. METHIMAZOLE [Concomitant]
     Active Substance: METHIMAZOLE
     Dosage: 2.5 MG
  9. VITAMINS NOS [Concomitant]
     Active Substance: VITAMINS

REACTIONS (19)
  - Thyrotoxic crisis [Recovered/Resolved]
  - Pruritus [Unknown]
  - Eye pain [Not Recovered/Not Resolved]
  - Blepharospasm [Unknown]
  - Exophthalmos [Not Recovered/Not Resolved]
  - Product supply issue [Unknown]
  - Product administration error [Unknown]
  - COVID-19 [Unknown]
  - Condition aggravated [Unknown]
  - Dry eye [Unknown]
  - Muscle spasms [Unknown]
  - Dry skin [Unknown]
  - Alopecia [Unknown]
  - Nausea [Unknown]
  - Headache [Unknown]
  - Symptom recurrence [Unknown]
  - Laboratory test abnormal [Unknown]
  - Stress [Not Recovered/Not Resolved]
  - Death of relative [Unknown]

NARRATIVE: CASE EVENT DATE: 20210601
